FAERS Safety Report 10205706 (Version 1)
Quarter: 2014Q2

REPORT INFORMATION
  Report Type: Spontaneous
  Country: US (occurrence: US)
  Receive Date: 20140530
  Receipt Date: 20140530
  Transmission Date: 20141212
  Serious: Yes (Other)
  Sender: FDA-Public Use
  Company Number: US-BEH-2014042655

PATIENT
  Sex: Female

DRUGS (2)
  1. CARIMUNE [Suspect]
     Indication: SELECTIVE IGG SUBCLASS DEFICIENCY
  2. ANTI-INFLAMMATORIES [Suspect]

REACTIONS (15)
  - Diabetes mellitus [Unknown]
  - Post-traumatic stress disorder [Unknown]
  - Anaphylactic reaction [Unknown]
  - Sleep apnoea syndrome [Unknown]
  - Bipolar disorder [Unknown]
  - Malaise [Unknown]
  - Blood creatinine increased [Unknown]
  - Hypertension [Unknown]
  - Fibromyalgia [Unknown]
  - Irritable bowel syndrome [Unknown]
  - Hypothyroidism [Unknown]
  - Renal failure [Unknown]
  - Gestational diabetes [Unknown]
  - Exposure during pregnancy [Unknown]
  - Weight increased [None]
